FAERS Safety Report 7220597-6 (Version None)
Quarter: 2011Q1

REPORT INFORMATION
  Report Type: 
  Country: None (occurrence: None)
  Receive Date: 20110111
  Receipt Date: 20110106
  Transmission Date: 20110831
  Serious: Yes (Other)
  Sender: FDA-Public Use
  Company Number: US-PFIZER INC-2011003946

PATIENT
  Sex: Male

DRUGS (4)
  1. LIPITOR [Suspect]
     Dosage: 10 MG,UNK
     Dates: start: 20010101
  2. LIPITOR [Suspect]
     Dosage: 20 MG, UNK
  3. LIPITOR [Suspect]
     Dosage: 80 MG, UNK
  4. LIPITOR [Suspect]
     Dosage: 40 MG, UNK

REACTIONS (4)
  - HAEMATOCHEZIA [None]
  - FISTULA [None]
  - CONSTIPATION [None]
  - ANAL FISSURE [None]
